FAERS Safety Report 10507367 (Version 1)
Quarter: 2014Q4

REPORT INFORMATION
  Report Type: Spontaneous
  Country: CA (occurrence: CA)
  Receive Date: 20141009
  Receipt Date: 20141009
  Transmission Date: 20150528
  Serious: Yes (Other)
  Sender: FDA-Public Use
  Company Number: CA-ROXANE LABORATORIES, INC.-2014-RO-01537RO

PATIENT
  Age: 44 Year
  Sex: Female

DRUGS (5)
  1. AZATHIOPRINE. [Suspect]
     Active Substance: AZATHIOPRINE
     Indication: MYOPATHY
     Dosage: 125 MG
     Route: 065
  2. AZATHIOPRINE. [Suspect]
     Active Substance: AZATHIOPRINE
     Dosage: 150 MG
     Route: 065
  3. METHOTREXATE [Concomitant]
     Active Substance: METHOTREXATE
     Indication: MYOPATHY
     Route: 065
  4. ALLOPURINOL. [Suspect]
     Active Substance: ALLOPURINOL
     Indication: MYOPATHY
     Dosage: 100 MG
     Route: 065
  5. FEBUXOSTAT. [Suspect]
     Active Substance: FEBUXOSTAT
     Indication: MYOPATHY
     Dosage: 40 MG
     Route: 065

REACTIONS (4)
  - Drug interaction [None]
  - Myositis [None]
  - Condition aggravated [None]
  - Drug reaction with eosinophilia and systemic symptoms [Recovered/Resolved]
